FAERS Safety Report 17402137 (Version 3)
Quarter: 2020Q3

REPORT INFORMATION
  Report Type: Spontaneous
  Country: US (occurrence: US)
  Receive Date: 20200211
  Receipt Date: 20200722
  Transmission Date: 20201102
  Serious: No
  Sender: FDA-Public Use
  Company Number: US-PFIZER INC-2020056131

PATIENT
  Age: 30 Year
  Sex: Female

DRUGS (1)
  1. XELJANZ [Suspect]
     Active Substance: TOFACITINIB CITRATE
     Indication: RHEUMATOID ARTHRITIS
     Dosage: 5 MG, 2X/DAY
     Route: 048
     Dates: start: 201908

REACTIONS (5)
  - Feeling abnormal [Unknown]
  - Memory impairment [Unknown]
  - Depressed mood [Unknown]
  - Bone disorder [Unknown]
  - Arthralgia [Recovering/Resolving]
